FAERS Safety Report 17862422 (Version 1)
Quarter: 2020Q2

REPORT INFORMATION
  Report Type: Spontaneous
  Country: None (occurrence: US)
  Receive Date: 20200604
  Receipt Date: 20200604
  Transmission Date: 20200714
  Serious: No
  Sender: FDA-Public Use
  Company Number: US-AVEDRO-AVE-2020-0085-AE

PATIENT
  Age: 21 Year
  Sex: Male

DRUGS (2)
  1. AVEDRO CROSS-LINKING PRODUCT(S), UNSPECIFIED [Suspect]
     Active Substance: RIBOFLAVIN 5^-PHOSPHATE SODIUM
     Indication: KERATOCONUS
     Route: 047
     Dates: start: 20200305, end: 20200305
  2. UNSPECIFIED NUMBING PRODUCT [Suspect]
     Active Substance: UNSPECIFIED INGREDIENT
     Indication: APPLICATION SITE ANAESTHESIA
     Route: 047
     Dates: start: 20200305, end: 20200305

REACTIONS (3)
  - Post procedural discomfort [Recovered/Resolved]
  - Feeling abnormal [Recovered/Resolved]
  - Vision blurred [Unknown]

NARRATIVE: CASE EVENT DATE: 202003
